FAERS Safety Report 5088358-4 (Version None)
Quarter: 2006Q3

REPORT INFORMATION
  Report Type: 
  Country: None (occurrence: None)
  Receive Date: 20060822
  Receipt Date: 20060731
  Transmission Date: 20061208
  Serious: Yes (Death, Other)
  Sender: FDA-Public Use
  Company Number: 201610

PATIENT
  Age: 69 Year
  Sex: Male

DRUGS (6)
  1. MABTHERA (RITUXIMAB)CONC FOR SOLUTION FOR INFUSION [Suspect]
     Indication: HAIRY CELL LEUKAEMIA
     Dosage: 675 UNK, SINGLE, INTRAVENOUS
     Route: 042
     Dates: start: 20020311, end: 20020311
  2. 2-CDA(2-CHLORODEOXYADENOSINE) [Suspect]
     Indication: HAIRY CELL LEUKAEMIA
     Dosage: 45 + 10 MG, UNK, SUBCUTANEOUS - SEE IMAGE
     Route: 058
     Dates: start: 19940822, end: 19940827
  3. 2-CDA(2-CHLORODEOXYADENOSINE) [Suspect]
     Indication: HAIRY CELL LEUKAEMIA
     Dosage: 45 + 10 MG, UNK, SUBCUTANEOUS - SEE IMAGE
     Route: 058
     Dates: start: 20021002, end: 20021006
  4. COTRIM [Concomitant]
  5. ALLOPURINOL [Concomitant]
  6. IMIPENEM (IMIPENEM) [Concomitant]

REACTIONS (2)
  - METASTASIS [None]
  - PROSTATE CANCER STAGE IV [None]
